FAERS Safety Report 7829902-0 (Version None)
Quarter: 2011Q4

REPORT INFORMATION
  Report Type: 
  Country: None (occurrence: None)
  Receive Date: 20111021
  Receipt Date: 20111003
  Transmission Date: 20120403
  Serious: Yes (Other)
  Sender: FDA-Public Use
  Company Number: US-BAYER-2011-095021

PATIENT
  Sex: Female

DRUGS (1)
  1. YAZ [Suspect]
     Dosage: UNK
     Dates: start: 20090503

REACTIONS (5)
  - ANXIETY [None]
  - INJURY [None]
  - PAIN [None]
  - GALLBLADDER DISORDER [None]
  - ANHEDONIA [None]
